FAERS Safety Report 22161888 (Version 1)
Quarter: 2023Q1

REPORT INFORMATION
  Report Type: Spontaneous
  Country: FR (occurrence: FR)
  Receive Date: 20230331
  Receipt Date: 20230331
  Transmission Date: 20230417
  Serious: Yes (Life-Threatening)
  Sender: FDA-Public Use
  Company Number: None

PATIENT
  Age: 37 Year
  Sex: Male
  Weight: 93 kg

DRUGS (3)
  1. FLUOROURACIL [Suspect]
     Active Substance: FLUOROURACIL
     Indication: Rectal adenocarcinoma
     Dosage: DOSAGE NOT SPECIFIED
     Route: 065
     Dates: start: 202209
  2. AVASTIN [Suspect]
     Active Substance: BEVACIZUMAB
     Indication: Rectal adenocarcinoma
     Dosage: DOSAGE NOT SPECIFIED
     Route: 065
     Dates: start: 202209
  3. LEUCOVORIN [Suspect]
     Active Substance: LEUCOVORIN
     Indication: Rectal adenocarcinoma
     Dosage: DOSAGE NOT SPECIFIED
     Route: 065
     Dates: start: 202209

REACTIONS (1)
  - Acute coronary syndrome [Recovered/Resolved]

NARRATIVE: CASE EVENT DATE: 20221213
